FAERS Safety Report 22023569 (Version 2)
Quarter: 2023Q1

REPORT INFORMATION
  Report Type: Report from Study
  Country: BR (occurrence: None)
  Receive Date: 20230223
  Receipt Date: 20230309
  Transmission Date: 20230417
  Serious: Yes (Hospitalization)
  Sender: FDA-Public Use
  Company Number: BR-ROCHE-3289876

PATIENT
  Age: 50 Year
  Sex: Male
  Weight: 94.8 kg

DRUGS (19)
  1. ATEZOLIZUMAB [Suspect]
     Active Substance: ATEZOLIZUMAB
     Indication: Hepatocellular carcinoma
     Dosage: DOSE LAST STUDY DRUG ADMIN PRIOR AE AND SAE IS 1200 MG?START DATE OF MOST RECENT DOSE OF STUDY DRUG
     Route: 041
     Dates: start: 20211028
  2. BEVACIZUMAB [Suspect]
     Active Substance: BEVACIZUMAB
     Indication: Hepatocellular carcinoma
     Dosage: DOSE LAST STUDY DRUG ADMIN PRIOR AE AND SAE IS 1422.7 MG?START DATE OF MOST RECENT DOSE OF STUDY DRU
     Route: 042
     Dates: start: 20211028
  3. AMLODIPINE BESYLATE\OLMESARTAN MEDOXOMIL [Concomitant]
     Active Substance: AMLODIPINE BESYLATE\OLMESARTAN MEDOXOMIL
     Indication: Hypertension
     Dates: start: 20211209
  4. NEBIVOLOL [Concomitant]
     Active Substance: NEBIVOLOL
     Indication: Hypertension
     Dates: start: 20211209
  5. CHLORTHALIDONE [Concomitant]
     Active Substance: CHLORTHALIDONE
     Indication: Hypertension
     Dates: start: 20211209
  6. NIMESULIDE [Concomitant]
     Active Substance: NIMESULIDE
     Dates: start: 20230127, end: 20230203
  7. CIPROFLOXACIN [Concomitant]
     Active Substance: CIPROFLOXACIN
     Dates: start: 20230127, end: 20230203
  8. HYDROCORTISONE [Concomitant]
     Active Substance: HYDROCORTISONE
     Indication: Peptic ulcer
     Dosage: YES
     Route: 042
     Dates: start: 20230216, end: 20230216
  9. SUCRAFILM [Concomitant]
     Indication: Peptic ulcer
     Dosage: YES
  10. ACETAMINOPHEN\CODEINE PHOSPHATE [Concomitant]
     Active Substance: ACETAMINOPHEN\CODEINE PHOSPHATE
  11. MORPHINE [Concomitant]
     Active Substance: MORPHINE
     Indication: Peptic ulcer
  12. ONDANSETRON [Concomitant]
     Active Substance: ONDANSETRON
     Indication: Peptic ulcer
     Dates: start: 20230216, end: 20230216
  13. PANTOPRAZOLE [Concomitant]
     Active Substance: PANTOPRAZOLE
     Indication: Peptic ulcer
     Dates: start: 20230216
  14. TRAMADOL [Concomitant]
     Active Substance: TRAMADOL
     Indication: Peptic ulcer
     Dates: start: 20230216, end: 20230216
  15. BROMOPRIDE [Concomitant]
     Active Substance: BROMOPRIDE
     Indication: Peptic ulcer
  16. ELECTROLYTES NOS\POLYETHYLENE GLYCOL 3350 [Concomitant]
     Active Substance: ELECTROLYTES NOS\POLYETHYLENE GLYCOL 3350
     Indication: Peptic ulcer
  17. KCL;NACL [Concomitant]
     Indication: Peptic ulcer
     Dates: start: 20230216, end: 20230216
  18. DIPYRONE;SCOPOLAMINE [Concomitant]
     Indication: Peptic ulcer
     Dates: start: 20230216
  19. DIPHENHYDRAMINE [Concomitant]
     Active Substance: DIPHENHYDRAMINE
     Indication: Peptic ulcer
     Dates: start: 20230216, end: 20230216

REACTIONS (1)
  - Abdominal pain upper [Recovered/Resolved]

NARRATIVE: CASE EVENT DATE: 20230201
